FAERS Safety Report 8617793-X (Version None)
Quarter: 2012Q3

REPORT INFORMATION
  Report Type: 
  Country: None (occurrence: None)
  Receive Date: 20120824
  Receipt Date: 20120214
  Transmission Date: 20120928
  Serious: No
  Sender: FDA-Public Use
  Company Number: US-ASTRAZENECA-2012SE10382

PATIENT
  Age: 74 Year
  Sex: Female
  Weight: 104.3 kg

DRUGS (6)
  1. SYMBICORT [Suspect]
     Dosage: 80-4.5 MICROGRAM, 2 PUFFS TWO TIMES A DAY
     Route: 055
  2. NOVOLOG [Concomitant]
     Dosage: 70/30, 100 UNIT/ML, TWO TIMES A DAY BEFORE MEALS
     Route: 058
  3. ZITHROMAX [Concomitant]
     Route: 048
  4. LANTUS [Concomitant]
     Dosage: 100 UNIT/ML
  5. ZITHROMAX [Concomitant]
     Route: 048
  6. ZITHROMAX [Concomitant]
     Route: 048

REACTIONS (6)
  - TYPE 2 DIABETES MELLITUS [None]
  - DRUG DOSE OMISSION [None]
  - BRONCHITIS [None]
  - HYPERLIPIDAEMIA [None]
  - CHRONIC OBSTRUCTIVE PULMONARY DISEASE [None]
  - UPPER RESPIRATORY TRACT INFECTION [None]
